FAERS Safety Report 5566742-X (Version None)
Quarter: 2007Q4

REPORT INFORMATION
  Report Type: 
  Country: None (occurrence: None)
  Receive Date: 20071219
  Receipt Date: 20071210
  Transmission Date: 20080405
  Serious: Yes (Hospitalization)
  Sender: FDA-Public Use
  Company Number: DE-ELI_LILLY_AND_COMPANY-DE200712002329

PATIENT
  Sex: Female

DRUGS (8)
  1. CYMBALTA [Suspect]
     Indication: DEPRESSION
     Dosage: 120 MG, DAILY (1/D)
     Route: 048
     Dates: end: 20070924
  2. PANTOPRAZOLE SODIUM [Concomitant]
  3. BERLTHYROX [Concomitant]
  4. ALLOPURINOL [Concomitant]
  5. OXYGESIC [Concomitant]
  6. ZOPICLON [Concomitant]
  7. MIRTAZAPINE [Concomitant]
  8. METAMIZOL [Concomitant]

REACTIONS (1)
  - RASH [None]
